FAERS Safety Report 7041105-9 (Version None)
Quarter: 2010Q4

REPORT INFORMATION
  Report Type: 
  Country: None (occurrence: None)
  Receive Date: 20101013
  Receipt Date: 20101006
  Transmission Date: 20110411
  Serious: Yes (Hospitalization, Other)
  Sender: FDA-Public Use
  Company Number: US-ROXANE LABORATORIES, INC.-2010-RO-01324RO

PATIENT
  Age: 49 Year
  Sex: Female

DRUGS (6)
  1. TOPIRAMATE [Suspect]
     Indication: NEUROPATHY PERIPHERAL
     Dosage: 300 MG
  2. TOPIRAMATE [Suspect]
  3. OLANZAPINE [Suspect]
  4. ATORVASTATIN [Suspect]
  5. ASPIRIN [Suspect]
  6. ESOMEPRAZOLE [Suspect]

REACTIONS (5)
  - CONFUSIONAL STATE [None]
  - DELUSION [None]
  - METABOLIC ACIDOSIS [None]
  - NEPHROLITHIASIS [None]
  - RENAL FAILURE ACUTE [None]
